FAERS Safety Report 5786962-9 (Version None)
Quarter: 2008Q2

REPORT INFORMATION
  Report Type: 
  Country: None (occurrence: None)
  Receive Date: 20080625
  Receipt Date: 20080319
  Transmission Date: 20081010
  Serious: No
  Sender: FDA-Public Use
  Company Number: US-BAYER-200818666NA

PATIENT
  Age: 66 Year
  Sex: Female

DRUGS (1)
  1. CLIMARA [Suspect]
     Indication: MENOPAUSAL SYMPTOMS
     Dosage: TOTAL DAILY DOSE: 0.05 MG  UNIT DOSE: 0.05 MG
     Route: 062
     Dates: start: 20050101

REACTIONS (1)
  - HOT FLUSH [None]
